FAERS Safety Report 4859721-9 (Version None)
Quarter: 2005Q4

REPORT INFORMATION
  Report Type: 
  Country: None (occurrence: None)
  Receive Date: 20051219
  Receipt Date: 20050223
  Transmission Date: 20060501
  Serious: Yes (Death)
  Sender: FDA-Public Use
  Company Number: JP-AVENTIS-200510611JP

PATIENT
  Age: 41 Year
  Sex: Female
  Weight: 51 kg

DRUGS (7)
  1. TAXOTERE [Suspect]
     Indication: CERVIX CARCINOMA RECURRENT
     Route: 041
     Dates: start: 20041124, end: 20041124
  2. CISPLATIN [Concomitant]
     Indication: CERVIX CARCINOMA RECURRENT
     Route: 041
     Dates: start: 20040705, end: 20041025
  3. CISPLATIN [Concomitant]
     Dosage: FREQUENCY: CONTINUOUS
     Route: 041
     Dates: start: 20041124, end: 20041128
  4. SEROTONE [Concomitant]
     Indication: ANTIEMETIC SUPPORTIVE CARE
     Route: 041
     Dates: start: 20041124, end: 20041128
  5. BLEOMYCIN [Concomitant]
     Indication: CERVIX CARCINOMA RECURRENT
     Dates: start: 20040705, end: 20041025
  6. ONCOVIN [Concomitant]
     Indication: CERVIX CARCINOMA RECURRENT
     Dates: start: 20040705, end: 20041025
  7. MITOMYCIN [Concomitant]
     Indication: CERVIX CARCINOMA RECURRENT
     Dates: start: 20040705, end: 20041025

REACTIONS (11)
  - ABDOMINAL PAIN [None]
  - BLOOD CALCIUM DECREASED [None]
  - BLOOD LACTATE DEHYDROGENASE INCREASED [None]
  - BLOOD PRESSURE DECREASED [None]
  - BLOOD SODIUM DECREASED [None]
  - DEPRESSED LEVEL OF CONSCIOUSNESS [None]
  - DIARRHOEA [None]
  - PYELONEPHRITIS [None]
  - PYREXIA [None]
  - SHOCK [None]
  - TACHYCARDIA [None]
